FAERS Safety Report 7530221-0 (Version None)
Quarter: 2011Q2

REPORT INFORMATION
  Report Type: 
  Country: None (occurrence: None)
  Receive Date: 20110606
  Receipt Date: 20110606
  Transmission Date: 20111010
  Serious: No
  Sender: FDA-Public Use
  Company Number: None

PATIENT
  Age: 21 Year
  Sex: Female
  Weight: 81.6475 kg

DRUGS (1)
  1. CEFDINIR [Suspect]
     Indication: URINARY TRACT INFECTION
     Dosage: 6ML BY MOUTH TWICE DAILY 10 DAYS
     Route: 048
     Dates: start: 20110510, end: 20110517

REACTIONS (2)
  - DIARRHOEA [None]
  - CONSTIPATION [None]
